FAERS Safety Report 23440767 (Version 2)
Quarter: 2024Q1

REPORT INFORMATION
  Report Type: Spontaneous
  Country: RO (occurrence: RO)
  Receive Date: 20240125
  Receipt Date: 20240212
  Transmission Date: 20240410
  Serious: Yes (Other)
  Sender: FDA-Public Use
  Company Number: RO-NOVOPROD-1164477

PATIENT
  Age: 60 Year
  Sex: Male
  Weight: 130 kg

DRUGS (3)
  1. OZEMPIC [Suspect]
     Active Substance: SEMAGLUTIDE
     Indication: Type 2 diabetes mellitus
     Dosage: 1 MG, QW
     Route: 058
     Dates: start: 20220110, end: 20240115
  2. OZEMPIC [Suspect]
     Active Substance: SEMAGLUTIDE
     Indication: Obesity
  3. METFORMIN [Concomitant]
     Active Substance: METFORMIN HYDROCHLORIDE
     Indication: Type 2 diabetes mellitus
     Dosage: 2 G, QD
     Dates: start: 2020

REACTIONS (1)
  - Pancreatic neoplasm [Unknown]

NARRATIVE: CASE EVENT DATE: 20231215
